FAERS Safety Report 9553875 (Version 1)
Quarter: 2013Q3

REPORT INFORMATION
  Report Type: Spontaneous
  Country: US (occurrence: None)
  Receive Date: 20130924
  Receipt Date: 20130924
  Transmission Date: 20140515
  Serious: No
  Sender: FDA-Public Use
  Company Number: None

PATIENT
  Age: 44 Year
  Sex: Female
  Weight: 66.23 kg

DRUGS (7)
  1. LISINOPRIL [Suspect]
     Indication: HYPERTENSION
     Dosage: 25 ONE IF NEED, BY MOUTH
     Dates: start: 20130518, end: 20130719
  2. FLEXERL [Concomitant]
  3. ADALAT CC [Concomitant]
  4. LEVOFLOXACIN 750MG CVS. MFR: DR. REDDY^S LAB [Concomitant]
  5. PREDNISONE 20 MG QUALITEST [Concomitant]
  6. NIFEDIPINE 90 MG [Concomitant]
  7. BANOPHEN 25 MG [Concomitant]

REACTIONS (1)
  - Renal failure [None]
